FAERS Safety Report 13267493 (Version 3)
Quarter: 2017Q2

REPORT INFORMATION
  Report Type: Report from Study
  Country: US (occurrence: US)
  Receive Date: 20170224
  Receipt Date: 20170421
  Transmission Date: 20170830
  Serious: Yes (Death, Other)
  Sender: FDA-Public Use
  Company Number: US-AMGEN-USASL2017028654

PATIENT
  Age: 89 Year
  Sex: Female
  Weight: 74.38 kg

DRUGS (1)
  1. PROLIA [Suspect]
     Active Substance: DENOSUMAB
     Indication: OSTEOPOROSIS
     Dosage: UNK
     Route: 065
     Dates: start: 20150110, end: 201610

REACTIONS (4)
  - Cardiac failure congestive [Unknown]
  - Appendicitis [Unknown]
  - Post procedural complication [Fatal]
  - Cholecystectomy [Unknown]
